FAERS Safety Report 20057682 (Version 1)
Quarter: 2021Q4

REPORT INFORMATION
  Report Type: Spontaneous
  Country: US (occurrence: US)
  Receive Date: 20211111
  Receipt Date: 20211111
  Transmission Date: 20220303
  Serious: No
  Sender: FDA-Public Use
  Company Number: US-APOTEX-2021AP045146

PATIENT
  Age: 23 Year
  Sex: Male

DRUGS (2)
  1. ATOMOXETINE [Suspect]
     Active Substance: ATOMOXETINE
     Indication: Attention deficit hyperactivity disorder
     Dosage: 40 MILLIGRAM, Q.AM (IN THE MORNING)
     Route: 048
     Dates: start: 20211018, end: 20211024
  2. HYDROCORTISONE;NEOMYCIN;POLYMYXIN B SULFATE [Concomitant]
     Indication: Ear infection
     Dosage: 4 DROPS IN EACH EAR, TID
     Route: 065

REACTIONS (4)
  - Pruritus [Recovering/Resolving]
  - Hypersensitivity [Recovering/Resolving]
  - Urticaria [Recovering/Resolving]
  - Palpitations [Recovering/Resolving]

NARRATIVE: CASE EVENT DATE: 20211020
